FAERS Safety Report 8532304-5 (Version None)
Quarter: 2012Q3

REPORT INFORMATION
  Report Type: 
  Country: None (occurrence: None)
  Receive Date: 20120724
  Receipt Date: 20120713
  Transmission Date: 20120928
  Serious: Yes (Hospitalization)
  Sender: FDA-Public Use
  Company Number: JP-GE HEALTHCARE MEDICAL DIAGNOSTICS-OSCN-NO-1207S-0105

PATIENT
  Sex: Female

DRUGS (2)
  1. OMNISCAN [Suspect]
     Indication: ENDOMETRIOSIS
  2. OMNISCAN [Suspect]
     Indication: UTERINE LEIOMYOMA
     Route: 042
     Dates: start: 20120605, end: 20120605

REACTIONS (3)
  - OROPHARYNGEAL PAIN [None]
  - COUGH [None]
  - EYELID OEDEMA [None]
